FAERS Safety Report 22380758 (Version 1)
Quarter: 2023Q2

REPORT INFORMATION
  Report Type: Spontaneous
  Country: CN (occurrence: CN)
  Receive Date: 20230530
  Receipt Date: 20230530
  Transmission Date: 20230722
  Serious: Yes (Hospitalization)
  Sender: FDA-Public Use
  Company Number: CN-JNJFOC-20230563782

PATIENT
  Age: 52 Year
  Sex: Male

DRUGS (1)
  1. ACETAMINOPHEN [Suspect]
     Active Substance: ACETAMINOPHEN
     Indication: Abdominal pain
     Dosage: HE TOOK ACETAMINOPHEN (PARACETAMOL) ORALLY AT HOME BY HIMSELF, TWO TO THREE TIMES A DAY, ONE TABLET
     Route: 065

REACTIONS (1)
  - Gastrointestinal perforation [Recovered/Resolved]
